FAERS Safety Report 24057370 (Version 1)
Quarter: 2024Q3

REPORT INFORMATION
  Report Type: Report from Study
  Country: US (occurrence: US)
  Receive Date: 20240706
  Receipt Date: 20240706
  Transmission Date: 20241017
  Serious: Yes (Hospitalization)
  Sender: AMGEN
  Company Number: US-AMGEN-USASL2024129590

PATIENT
  Age: 67 Year
  Sex: Male

DRUGS (1)
  1. ENBREL [Suspect]
     Active Substance: BENZYL ALCOHOL\ETANERCEPT
     Indication: Ankylosing spondylitis
     Dosage: 50 MILLIGRAM, QWK
     Route: 065
     Dates: start: 20240322, end: 20240607

REACTIONS (3)
  - Abdominal discomfort [Unknown]
  - Hypoaesthesia [Unknown]
  - Hypertension [Unknown]

NARRATIVE: CASE EVENT DATE: 20240101
